FAERS Safety Report 17300283 (Version 1)
Quarter: 2020Q1

REPORT INFORMATION
  Report Type: Spontaneous
  Country: US (occurrence: US)
  Receive Date: 20200121
  Receipt Date: 20200121
  Transmission Date: 20200409
  Serious: Yes (Other)
  Sender: FDA-Public Use
  Company Number: None

PATIENT
  Age: 24 Year
  Sex: Female
  Weight: 89.1 kg

DRUGS (1)
  1. FLUCANOZOLE [Suspect]
     Active Substance: FLUCONAZOLE
     Indication: FUNGAL INFECTION
     Dosage: ?          QUANTITY:1 TABLET(S);OTHER FREQUENCY:48HOURS BTWN DOSES;?
     Route: 048
     Dates: start: 20200115, end: 20200117

REACTIONS (7)
  - Abortion spontaneous [None]
  - Exposure during pregnancy [None]
  - Vaginal haemorrhage [None]
  - Vaginal infection [None]
  - Pain [None]
  - Drug monitoring procedure not performed [None]
  - Maternal drugs affecting foetus [None]

NARRATIVE: CASE EVENT DATE: 20200120
